FAERS Safety Report 6503437-X (Version None)
Quarter: 2009Q4

REPORT INFORMATION
  Report Type: 
  Country: None (occurrence: None)
  Receive Date: 20091201
  Receipt Date: 20090803
  Transmission Date: 20100525
  Serious: Yes (Hospitalization)
  Sender: FDA-Public Use
  Company Number: 2009SP017693

PATIENT
  Age: 26 Year
  Sex: Female
  Weight: 86.1834 kg

DRUGS (4)
  1. NUVARING [Suspect]
     Indication: CONTRACEPTION
     Dosage: 1 DF; QM; VAG
     Route: 067
     Dates: start: 20011101, end: 20060804
  2. NORTRIPTYLINE HCL [Concomitant]
  3. PROPRANOLOL [Concomitant]
  4. ACEON [Concomitant]

REACTIONS (4)
  - CEREBROVASCULAR ACCIDENT [None]
  - HEADACHE [None]
  - HEMIPARESIS [None]
  - PAIN [None]
